FAERS Safety Report 7786604-7 (Version None)
Quarter: 2011Q3

REPORT INFORMATION
  Report Type: 
  Country: None (occurrence: None)
  Receive Date: 20110929
  Receipt Date: 20110919
  Transmission Date: 20111222
  Serious: Yes (Other)
  Sender: FDA-Public Use
  Company Number: GB-ELI_LILLY_AND_COMPANY-GB201106007390

PATIENT
  Sex: Female
  Weight: 56 kg

DRUGS (11)
  1. FERROUS FUMARATE [Concomitant]
     Dosage: 140 MG, QD
  2. FORTISIP [Concomitant]
     Dosage: UNK, PRN
  3. CYMBALTA [Suspect]
     Indication: DEPRESSION
     Dosage: 30 MG, QD
     Route: 033
     Dates: start: 20110606
  4. BENDROFLUMETHIAZIDE [Concomitant]
     Dosage: 25 MG, UNK
  5. ACETAMINOPHEN [Concomitant]
     Dosage: 500 MG, BID
  6. FOLIC ACID [Concomitant]
     Dosage: 5 MG, UNK
  7. AMLODIPINE [Concomitant]
     Dosage: 5 MG, QD
  8. ASPIRIN [Concomitant]
     Dosage: 75 MG, QD
  9. BUPRENORPHINE [Concomitant]
     Dosage: 10 UG, OTHER
     Route: 062
  10. BISOPROLOL                         /00802601/ [Concomitant]
     Dosage: 2.5 MG, QD
  11. LANSOPRAZOLE [Concomitant]
     Dosage: 30 MG, QD

REACTIONS (2)
  - WRONG TECHNIQUE IN DRUG USAGE PROCESS [None]
  - GASTROSTOMY TUBE INSERTION [None]
